FAERS Safety Report 11918241 (Version 1)
Quarter: 2016Q1

REPORT INFORMATION
  Report Type: Spontaneous
  Country: US (occurrence: US)
  Receive Date: 20160114
  Receipt Date: 20160114
  Transmission Date: 20160526
  Serious: Yes (Death)
  Sender: FDA-Public Use
  Company Number: US-JNJFOC-20160102968

PATIENT
  Age: 99 Year
  Sex: Male
  Weight: 65.77 kg

DRUGS (4)
  1. TYLENOL REGULAR STRENGTH [Suspect]
     Active Substance: ACETAMINOPHEN
     Indication: ARTHRITIS
     Dosage: SOMETIMES TOOK 1 AND SOMETIMES 2, FOR YEARS
     Route: 048
  2. TYLENOL ARTHRITIS PAIN [Suspect]
     Active Substance: ACETAMINOPHEN
     Indication: ARTHRITIS
     Dosage: SOMETIMES TOOK 1 AND SOMETIMES 2.
     Route: 048
  3. TYLENOL ARTHRITIS PAIN [Suspect]
     Active Substance: ACETAMINOPHEN
     Indication: BONE PAIN
     Dosage: SOMETIMES TOOK 1 AND SOMETIMES 2.
     Route: 048
  4. TYLENOL REGULAR STRENGTH [Suspect]
     Active Substance: ACETAMINOPHEN
     Indication: BONE PAIN
     Dosage: SOMETIMES TOOK 1 AND SOMETIMES 2, FOR YEARS
     Route: 048

REACTIONS (1)
  - Death [Fatal]
